FAERS Safety Report 23727512 (Version 1)
Quarter: 2024Q2

REPORT INFORMATION
  Report Type: Spontaneous
  Country: US (occurrence: None)
  Receive Date: 20240409
  Receipt Date: 20240409
  Transmission Date: 20240716
  Serious: No
  Sender: FDA-Public Use
  Company Number: None

PATIENT
  Age: 23 Year
  Sex: Female

DRUGS (2)
  1. TALTZ [Suspect]
     Active Substance: IXEKIZUMAB
     Indication: Psoriasis
     Dosage: INJECT 80MG (1 SYRINGE) SUBCUTANEOUSLY EVERY 2 WEEKS AT WEEKS 4-12 THEN EVERY 4 WEEKS AS
     Route: 058
     Dates: start: 202312
  2. TALTZ [Suspect]
     Active Substance: IXEKIZUMAB
     Indication: Psoriasis

REACTIONS (1)
  - Bronchitis [None]
